FAERS Safety Report 10205614 (Version 1)
Quarter: 2014Q2

REPORT INFORMATION
  Report Type: Spontaneous
  Country: US (occurrence: US)
  Receive Date: 20140529
  Receipt Date: 20140529
  Transmission Date: 20141212
  Serious: Yes (Other)
  Sender: FDA-Public Use
  Company Number: PHEH2014US010678

PATIENT
  Age: 67 Year
  Sex: Female
  Weight: 63 kg

DRUGS (16)
  1. TOBI [Suspect]
     Dosage: 112 MG, Q12H (4 CAPSULES OF 28 MG FOR 28 DAYS)
     Route: 055
  2. LOSARTAN POTASSIUM [Suspect]
     Indication: HYPERTENSION
     Dosage: 25 MG, DAILY
     Dates: start: 20140217, end: 20140422
  3. IPRATROPIUM BROMIDE [Concomitant]
     Dosage: 2 SPRAY 2-3 TIMES EVERY DAY IN EACH NOSTRIL
     Route: 045
  4. NAPROXEN [Concomitant]
     Dosage: 1 DF, BID
     Route: 048
  5. ASPIRIN [Concomitant]
     Dosage: 1 DF, EVERY DAY
     Route: 048
  6. DIPHENHYDRAMIN HCL [Concomitant]
     Dosage: 1 DF, BID AS NEEDED
     Route: 048
  7. CYCLOBENZAPRIN HCL [Concomitant]
     Dosage: 1 DF, 1-2 TIMES EVERY DAY
     Route: 048
  8. OMEPRAZOLE [Concomitant]
     Dosage: 1 DF, QD BEFORE MEAL
     Route: 048
  9. VITAMIN E [Concomitant]
     Dosage: 1 DF, EVERY DAY
     Route: 048
  10. BUTALBITAL, ACETAMINOPHEN AND CAFFEINE [Concomitant]
     Dosage: 1 OR 2 DF EVERY 4 HOURS AS NEEDED
     Route: 048
  11. VITAMIN C [Concomitant]
     Dosage: 1 DF, EVERY DAY
     Route: 048
  12. VITAMIN D [Concomitant]
     Dosage: 1 DF, EVERY DAY
     Route: 048
  13. XOPENEX [Concomitant]
     Dosage: 2 PUFFS, Q6H
     Route: 055
  14. THEOPHYLLINE ANHYDROUS [Concomitant]
     Dosage: 2 DF, BID
     Route: 048
  15. QVAR [Concomitant]
     Dosage: 2 PUFFS , BID
     Route: 055
  16. OXYGEN [Concomitant]
     Dosage: 2-3 L, QD
     Route: 045

REACTIONS (8)
  - Cardiac septal defect residual shunt [Unknown]
  - Blood pressure increased [Unknown]
  - Wheezing [Unknown]
  - Rhonchi [Unknown]
  - Heart rate increased [Unknown]
  - Respiratory rate increased [Unknown]
  - Peripheral swelling [Unknown]
  - Cough [Unknown]
